FAERS Safety Report 4288678-7 (Version None)
Quarter: 2004Q1

REPORT INFORMATION
  Report Type: 
  Country: None (occurrence: None)
  Receive Date: 20040205
  Receipt Date: 20040115
  Transmission Date: 20041129
  Serious: Yes (Hospitalization)
  Sender: FDA-Public Use
  Company Number: B01200303024

PATIENT
  Age: 68 Year
  Sex: Female

DRUGS (9)
  1. CLOPIDOGREL BISULFATE [Suspect]
     Indication: PROPHYLAXIS
     Dosage: 75 MG QD; ORAL
     Route: 048
     Dates: start: 20031115
  2. ACETYLSALICYLIC ACID SRT [Concomitant]
  3. ZOCOR [Concomitant]
  4. PRILOSEC [Concomitant]
  5. KCL (POTASSIUM CHLORIDE) [Concomitant]
  6. CALCIUM [Concomitant]
  7. METOPROLOL [Concomitant]
  8. CLARINASE (LORATADINE/ PSEUDOEPHEDRINE) [Concomitant]
  9. MULTI-VITAMINS [Concomitant]

REACTIONS (4)
  - ALANINE AMINOTRANSFERASE INCREASED [None]
  - ASPARTATE AMINOTRANSFERASE INCREASED [None]
  - CHROMATURIA [None]
  - RHABDOMYOLYSIS [None]
